FAERS Safety Report 9949394 (Version 1)
Quarter: 2014Q1

REPORT INFORMATION
  Report Type: Spontaneous
  Country: US (occurrence: None)
  Receive Date: 20140122
  Receipt Date: 20140122
  Transmission Date: 20141002
  Serious: No
  Sender: FDA-Public Use
  Company Number: AEGR000172

PATIENT
  Age: 63 Year
  Sex: Male
  Weight: 84.8 kg

DRUGS (3)
  1. JUXTAPID (LOMITAPIDE) CAPSULE, 5MG [Suspect]
     Indication: TYPE IIA HYPERLIPIDAEMIA
     Route: 048
     Dates: start: 20131002, end: 20131006
  2. INSULIN (INSULIN) [Concomitant]
  3. ZETIA (EZETIMIBE) [Concomitant]

REACTIONS (2)
  - Diarrhoea [None]
  - Nausea [None]
